FAERS Safety Report 6833447-4 (Version None)
Quarter: 2010Q3

REPORT INFORMATION
  Report Type: 
  Country: None (occurrence: None)
  Receive Date: 20100712
  Receipt Date: 20070324
  Transmission Date: 20110219
  Serious: No
  Sender: FDA-Public Use
  Company Number: US-PFIZER INC-2007025760

PATIENT
  Sex: Female
  Weight: 78.93 kg

DRUGS (4)
  1. CHANTIX [Suspect]
     Indication: SMOKING CESSATION THERAPY
     Dates: start: 20070301
  2. RISPERDAL [Concomitant]
     Indication: INSOMNIA
  3. ROZEREM [Concomitant]
     Indication: INSOMNIA
     Dates: start: 20070301
  4. PREVACID [Concomitant]

REACTIONS (4)
  - INSOMNIA [None]
  - NERVOUSNESS [None]
  - POOR QUALITY SLEEP [None]
  - WEIGHT INCREASED [None]
